FAERS Safety Report 9049171 (Version 1)
Quarter: 2013Q1

REPORT INFORMATION
  Report Type: Spontaneous
  Country: FR (occurrence: FR)
  Receive Date: 20130205
  Receipt Date: 20130205
  Transmission Date: 20140127
  Serious: Yes (Hospitalization)
  Sender: FDA-Public Use
  Company Number: FR-ROCHE-1185812

PATIENT
  Age: 13 None
  Sex: Male

DRUGS (6)
  1. APRANAX [Suspect]
     Indication: MIGRAINE
     Route: 048
     Dates: start: 20120928
  2. METHOTREXATE [Suspect]
     Indication: JUVENILE IDIOPATHIC ARTHRITIS
     Route: 048
  3. HUMIRA [Suspect]
     Indication: JUVENILE IDIOPATHIC ARTHRITIS
     Route: 058
  4. SIBELIUM [Suspect]
     Indication: MIGRAINE
     Route: 048
  5. LAMALINE [Suspect]
     Indication: MIGRAINE
     Route: 065
  6. FOLIC ACID [Suspect]
     Indication: MIGRAINE
     Route: 048
     Dates: start: 20120928

REACTIONS (3)
  - Renal colic [Recovered/Resolved]
  - Nephrolithiasis [Recovered/Resolved]
  - Renal stone removal [Recovered/Resolved]
